FAERS Safety Report 24192206 (Version 1)
Quarter: 2024Q3

REPORT INFORMATION
  Report Type: Spontaneous
  Country: FR (occurrence: FR)
  Receive Date: 20240809
  Receipt Date: 20240809
  Transmission Date: 20241016
  Serious: Yes (Hospitalization)
  Sender: ROCHE
  Company Number: None

PATIENT
  Age: 66 Year
  Sex: Male

DRUGS (14)
  1. OCREVUS [Suspect]
     Active Substance: OCRELIZUMAB
     Indication: Pemphigus
     Route: 042
     Dates: start: 20240311
  2. OCREVUS [Suspect]
     Active Substance: OCRELIZUMAB
     Route: 042
     Dates: start: 20240325
  3. INSULIN GLARGINE [Suspect]
     Active Substance: INSULIN GLARGINE
     Indication: Diabetes mellitus
     Route: 058
     Dates: start: 20240323
  4. IRBESARTAN [Suspect]
     Active Substance: IRBESARTAN
     Indication: Hypertension
     Route: 048
  5. LANSOPRAZOLE [Suspect]
     Active Substance: LANSOPRAZOLE
     Indication: Prophylaxis
     Route: 048
  6. PREDNISONE [Suspect]
     Active Substance: PREDNISONE
     Indication: Pemphigus
     Route: 048
     Dates: end: 20240422
  7. PREDNISONE [Suspect]
     Active Substance: PREDNISONE
     Route: 048
     Dates: start: 20240408, end: 20240415
  8. PREDNISONE [Suspect]
     Active Substance: PREDNISONE
     Route: 048
     Dates: start: 20240222, end: 20240322
  9. PREDNISONE [Suspect]
     Active Substance: PREDNISONE
     Route: 048
     Dates: start: 20240322, end: 20240325
  10. PREDNISONE [Suspect]
     Active Substance: PREDNISONE
     Route: 048
     Dates: start: 20240422, end: 20240429
  11. PREDNISONE [Suspect]
     Active Substance: PREDNISONE
     Route: 048
     Dates: start: 20240401, end: 20240408
  12. PREDNISONE [Suspect]
     Active Substance: PREDNISONE
     Route: 048
     Dates: start: 20240325, end: 20240401
  13. ATORVASTATIN [Suspect]
     Active Substance: ATORVASTATIN
     Indication: Dyslipidaemia
     Route: 048
  14. METFORMIN HYDROCHLORIDE [Suspect]
     Active Substance: METFORMIN HYDROCHLORIDE
     Indication: Diabetes mellitus
     Route: 048
     Dates: start: 20240323

REACTIONS (1)
  - Ischaemic stroke [Recovering/Resolving]

NARRATIVE: CASE EVENT DATE: 20240401
